FAERS Safety Report 25442027 (Version 1)
Quarter: 2025Q2

REPORT INFORMATION
  Report Type: Spontaneous
  Country: NZ (occurrence: NZ)
  Receive Date: 20250616
  Receipt Date: 20250616
  Transmission Date: 20250716
  Serious: Yes (Hospitalization, Other)
  Sender: MERCK SHARP & DOHME LLC
  Company Number: NZ-009507513-2296177

PATIENT
  Age: 52 Year
  Sex: Female

DRUGS (3)
  1. PEMBROLIZUMAB [Suspect]
     Active Substance: PEMBROLIZUMAB
     Indication: Lung adenocarcinoma
     Dates: start: 20230512, end: 20230623
  2. CARBOPLATIN [Suspect]
     Active Substance: CARBOPLATIN
     Indication: Lung adenocarcinoma
     Dates: start: 20230512
  3. PEMETREXED [Suspect]
     Active Substance: PEMETREXED
     Indication: Lung adenocarcinoma
     Dates: start: 20230512

REACTIONS (15)
  - Obstructive airways disorder [Unknown]
  - Pyrexia [Unknown]
  - General physical health deterioration [Unknown]
  - Toxic epidermal necrolysis [Unknown]
  - Immune-mediated dermatitis [Unknown]
  - Stevens-Johnson syndrome [Unknown]
  - Skin exfoliation [Unknown]
  - Skin fissures [Unknown]
  - Rash macular [Unknown]
  - Lymphadenopathy [Unknown]
  - Pneumonia [Unknown]
  - Erythema [Unknown]
  - Malaise [Unknown]
  - Diarrhoea [Unknown]
  - Pain [Unknown]

NARRATIVE: CASE EVENT DATE: 20230516
